FAERS Safety Report 10517498 (Version 1)
Quarter: 2014Q4

REPORT INFORMATION
  Report Type: Spontaneous
  Country: US (occurrence: None)
  Receive Date: 20141003
  Receipt Date: 20141003
  Transmission Date: 20150528
  Serious: Yes (Life-Threatening)
  Sender: FDA-Public Use
  Company Number: 1261544

PATIENT
  Age: 57 Year
  Sex: Male
  Weight: 75.3 kg

DRUGS (3)
  1. INCINVEK (TELAPREVIR) [Concomitant]
  2. RIBASPHERE [Suspect]
     Active Substance: RIBAVIRIN
  3. PEGASYS [Suspect]
     Active Substance: PEGINTERFERON ALFA-2A
     Indication: HEPATITIS C
     Route: 058
     Dates: start: 20130812, end: 20130812

REACTIONS (1)
  - Rash [None]

NARRATIVE: CASE EVENT DATE: 20130812
